FAERS Safety Report 6022750-6 (Version None)
Quarter: 2008Q4

REPORT INFORMATION
  Report Type: 
  Country: None (occurrence: None)
  Receive Date: 20081230
  Receipt Date: 20081222
  Transmission Date: 20090506
  Serious: Yes (Hospitalization)
  Sender: FDA-Public Use
  Company Number: FR-AVENTIS-200814087FR

PATIENT
  Age: 62 Year
  Sex: Male

DRUGS (2)
  1. KETEK [Suspect]
     Route: 048
     Dates: start: 20080915, end: 20080920
  2. DIPROSONE                          /00008504/ [Concomitant]

REACTIONS (2)
  - HEPATITIS [None]
  - MIXED LIVER INJURY [None]
